FAERS Safety Report 24993359 (Version 1)
Quarter: 2025Q1

REPORT INFORMATION
  Report Type: Report from Study
  Country: US (occurrence: US)
  Receive Date: 20250221
  Receipt Date: 20250221
  Transmission Date: 20250409
  Serious: No
  Sender: AMNEAL
  Company Number: US-AMNEAL PHARMACEUTICALS-2024-AMRX-04092

PATIENT
  Sex: Male
  Weight: 106.58 kg

DRUGS (1)
  1. EMVERM [Suspect]
     Active Substance: MEBENDAZOLE
     Indication: Ascariasis
     Dosage: 1 TABLETS, BID
     Route: 048

REACTIONS (2)
  - Wound [Unknown]
  - Bacterial infection [Unknown]
